FAERS Safety Report 10052105 (Version 1)
Quarter: 2014Q2

REPORT INFORMATION
  Report Type: Spontaneous
  Country: US (occurrence: None)
  Receive Date: 20140401
  Receipt Date: 20140401
  Transmission Date: 20141212
  Serious: Yes (Other)
  Sender: FDA-Public Use
  Company Number: None

PATIENT
  Age: 56 Year
  Sex: Female
  Weight: 97.98 kg

DRUGS (6)
  1. MORPHINE SULFATE [Suspect]
     Indication: BACK PAIN
     Route: 048
     Dates: start: 20140318, end: 20140331
  2. MORPHINE SULFATE [Suspect]
     Indication: FIBROMYALGIA
     Route: 048
     Dates: start: 20140318, end: 20140331
  3. VOLTAREN GEL [Concomitant]
  4. SAVELLA [Concomitant]
  5. LUNESTA [Concomitant]
  6. AVINZA [Concomitant]

REACTIONS (6)
  - Musculoskeletal stiffness [None]
  - Headache [None]
  - Back pain [None]
  - Condition aggravated [None]
  - Drug intolerance [None]
  - Product substitution issue [None]
